FAERS Safety Report 22352225 (Version 2)
Quarter: 2023Q2

REPORT INFORMATION
  Report Type: Spontaneous
  Country: RU (occurrence: RU)
  Receive Date: 20230522
  Receipt Date: 20230605
  Transmission Date: 20230722
  Serious: Yes (Hospitalization)
  Sender: FDA-Public Use
  Company Number: RU-MLMSERVICE-20230509-4279429-1

PATIENT
  Age: 17 Year
  Sex: Female
  Weight: 150 kg

DRUGS (26)
  1. DEXAMETHASONE [Suspect]
     Active Substance: DEXAMETHASONE
     Indication: Antiinflammatory therapy
     Route: 042
     Dates: start: 20211104, end: 20211104
  2. DEXAMETHASONE [Suspect]
     Active Substance: DEXAMETHASONE
     Route: 051
     Dates: start: 20211104, end: 202111
  3. OMEPRAZOLE [Concomitant]
     Active Substance: OMEPRAZOLE
     Indication: Product used for unknown indication
     Route: 048
     Dates: start: 20211104
  4. ENOXAPARIN [Concomitant]
     Active Substance: ENOXAPARIN
     Indication: Thrombosis prophylaxis
     Route: 058
     Dates: start: 20211104
  5. ENOXAPARIN [Concomitant]
     Active Substance: ENOXAPARIN
     Route: 058
     Dates: start: 20211104
  6. POTASSIUM AND MAGNESIUM ASPARAGINATE [Concomitant]
     Indication: Product used for unknown indication
     Dates: start: 2018
  7. REMDESIVIR [Concomitant]
     Active Substance: REMDESIVIR
     Indication: COVID-19
     Dosage: ON FIRST DAY
     Dates: start: 20211104
  8. REMDESIVIR [Concomitant]
     Active Substance: REMDESIVIR
     Dosage: STARTING FROM THE SECOND DAY
     Dates: start: 20211105
  9. FUROSEMIDE [Concomitant]
     Active Substance: FUROSEMIDE
     Indication: Product used for unknown indication
     Dosage: FOR EVERY 3 DAYS, WITH A BREAK ON DAY 4
     Dates: start: 2018
  10. METFORMIN [Concomitant]
     Active Substance: METFORMIN HYDROCHLORIDE
     Indication: Product used for unknown indication
     Dosage: IN THE EVENING
     Dates: start: 2018
  11. AMBROXOL [Concomitant]
     Active Substance: AMBROXOL
     Indication: COVID-19
     Route: 048
     Dates: start: 202111
  12. OXYGEN [Concomitant]
     Active Substance: OXYGEN
     Indication: Oxygen therapy
     Dates: start: 20211106, end: 20211107
  13. OXYGEN [Concomitant]
     Active Substance: OXYGEN
     Dates: start: 20211108
  14. OXYGEN [Concomitant]
     Active Substance: OXYGEN
     Dates: start: 20211108
  15. OXYGEN [Concomitant]
     Active Substance: OXYGEN
     Dates: start: 202111, end: 202111
  16. OXYGEN [Concomitant]
     Active Substance: OXYGEN
     Dates: start: 202111, end: 202111
  17. SODIUM CHLORIDE [Concomitant]
     Active Substance: SODIUM CHLORIDE
     Indication: Product used for unknown indication
     Dosage: WITH REMDESIVIR
     Dates: start: 20211104
  18. SODIUM CHLORIDE [Concomitant]
     Active Substance: SODIUM CHLORIDE
     Dosage: WITH VITAMIN C
     Route: 042
     Dates: start: 20211104
  19. VITAMIN C [Concomitant]
     Active Substance: ASCORBIC ACID
     Indication: Product used for unknown indication
     Dosage: DISSOLVED IN 250 ML OF 0.9% NACL
     Route: 042
     Dates: start: 20211104
  20. ACETAMINOPHEN [Concomitant]
     Active Substance: ACETAMINOPHEN
     Indication: Pyrexia
     Dosage: 500 MG IN CASE OF BODY TEMPERATURE INCREASE ABOVE 38 ?C
     Route: 048
     Dates: start: 20211104
  21. CEFTRIAXONE [Concomitant]
     Active Substance: CEFTRIAXONE
     Indication: Antibiotic therapy
     Route: 042
     Dates: start: 20211104
  22. CEFTRIAXONE [Concomitant]
     Active Substance: CEFTRIAXONE
     Route: 030
     Dates: start: 20211104
  23. ENALAPRIL [Concomitant]
     Active Substance: ENALAPRIL
     Indication: Hypertension
     Dates: start: 20211105, end: 20211111
  24. .ALPHA.-LIPOIC ACID [Concomitant]
     Active Substance: .ALPHA.-LIPOIC ACID
     Indication: Product used for unknown indication
     Dates: start: 2018
  25. IBUPROFEN [Concomitant]
     Active Substance: IBUPROFEN
     Indication: Product used for unknown indication
     Route: 048
     Dates: start: 20211029
  26. DROTAVERINE [Concomitant]
     Active Substance: DROTAVERINE
     Indication: Product used for unknown indication
     Route: 048
     Dates: start: 20211029

REACTIONS (2)
  - Leukocytosis [Recovered/Resolved]
  - Hyperglycaemia [Recovered/Resolved]

NARRATIVE: CASE EVENT DATE: 20211101
